FAERS Safety Report 18323685 (Version 2)
Quarter: 2020Q4

REPORT INFORMATION
  Report Type: Spontaneous
  Country: BR (occurrence: BR)
  Receive Date: 20200928
  Receipt Date: 20201019
  Transmission Date: 20210113
  Serious: Yes (Other)
  Sender: FDA-Public Use
  Company Number: BR-NOVOPROD-755781

PATIENT
  Age: 55 Year
  Sex: Female
  Weight: 68 kg

DRUGS (4)
  1. OZEMPIC [Suspect]
     Active Substance: SEMAGLUTIDE
     Indication: WEIGHT DECREASED
     Dosage: UNK
     Route: 065
     Dates: start: 202004
  2. OZEMPIC [Suspect]
     Active Substance: SEMAGLUTIDE
     Dosage: 0.25 MG, QW
     Route: 065
     Dates: start: 20200907, end: 202009
  3. MESALAZINE [Concomitant]
     Active Substance: MESALAMINE
     Indication: FLUID RETENTION
     Dosage: 800 MG, BID
  4. CLORTALIDONE [Concomitant]
     Indication: HYPERTENSION
     Dosage: 6.25 MG, QD (1/2 TABLET OF 12.5 MG/DAY)
     Route: 065

REACTIONS (3)
  - Product use in unapproved indication [Unknown]
  - Dengue fever [Not Recovered/Not Resolved]
  - Hepatic infection [Not Recovered/Not Resolved]

NARRATIVE: CASE EVENT DATE: 20200907
